FAERS Safety Report 20997354 (Version 3)
Quarter: 2025Q2

REPORT INFORMATION
  Report Type: Spontaneous
  Country: US (occurrence: US)
  Receive Date: 20220623
  Receipt Date: 20250609
  Transmission Date: 20250716
  Serious: Yes (Hospitalization, Other)
  Sender: AUROBINDO
  Company Number: US-MLMSERVICE-20220608-3599426-1

PATIENT
  Age: 21 Year
  Sex: Male

DRUGS (1)
  1. TERBINAFINE [Suspect]
     Active Substance: TERBINAFINE
     Indication: Onychomycosis
     Dosage: 250 MILLIGRAM, ONCE A DAY
     Route: 048

REACTIONS (2)
  - Pancreatitis [Recovered/Resolved]
  - Weight increased [Recovered/Resolved]
